FAERS Safety Report 6527195-8 (Version None)
Quarter: 2010Q1

REPORT INFORMATION
  Report Type: 
  Country: None (occurrence: None)
  Receive Date: 20100105
  Receipt Date: 20100104
  Transmission Date: 20100710
  Serious: Yes (Other)
  Sender: FDA-Public Use
  Company Number: D0065262A

PATIENT
  Sex: Female

DRUGS (3)
  1. ZOFRAN [Suspect]
     Indication: CHEMOTHERAPY
     Route: 065
     Dates: start: 20091207
  2. AMIFOSTINE [Suspect]
     Indication: ANTIOXIDANT THERAPY
     Route: 065
  3. DEXAMETHASONE TAB [Suspect]
     Route: 065

REACTIONS (6)
  - BLOOD PRESSURE DECREASED [None]
  - CIRCULATORY COLLAPSE [None]
  - DRUG INEFFECTIVE [None]
  - DRUG INTERACTION [None]
  - NAUSEA [None]
  - PULSE VOLUME DECREASED [None]
